FAERS Safety Report 19100242 (Version 2)
Quarter: 2021Q2

REPORT INFORMATION
  Report Type: Report from Study
  Country: JP (occurrence: JP)
  Receive Date: 20210407
  Receipt Date: 20210421
  Transmission Date: 20210717
  Serious: Yes (Hospitalization)
  Sender: FDA-Public Use
  Company Number: JP-ROCHE-2797541

PATIENT
  Age: 76 Year
  Sex: Male
  Weight: 70.7 kg

DRUGS (11)
  1. IRBESARTAN. [Concomitant]
     Active Substance: IRBESARTAN
     Indication: HYPERTENSION
     Route: 048
     Dates: start: 201407
  2. OBP 301 [Suspect]
     Active Substance: SURATADENOTUREV
     Indication: HEPATOCELLULAR CARCINOMA
     Dosage: 1. 10 12 VIRAL PARTICLES/ML, DAY 1, DAY 22, AND DAY 43?MOST RECENT DOSE ON 17/FEB/2021
     Route: 036
     Dates: start: 20210116
  3. MAGNESIUM OXIDE. [Concomitant]
     Active Substance: MAGNESIUM OXIDE
     Indication: CONSTIPATION
     Dosage: FOR 330?660MG AND TONS ONCE
     Route: 048
     Dates: start: 20210110
  4. ATEZOLIZUMAB. [Suspect]
     Active Substance: ATEZOLIZUMAB
     Indication: HEPATOCELLULAR CARCINOMA
     Route: 042
     Dates: start: 20210113
  5. WHITE PETROLATUM [Concomitant]
     Active Substance: PETROLATUM
     Indication: DRY SKIN
     Dosage: DAY SEVERAL?TIME PROPER QUANTITIES
     Route: 061
     Dates: start: 2020
  6. FEBURIC [Concomitant]
     Active Substance: FEBUXOSTAT
     Indication: HYPERURICAEMIA
     Route: 048
     Dates: start: 202002
  7. BEVACIZUMAB. [Suspect]
     Active Substance: BEVACIZUMAB
     Indication: HEPATOCELLULAR CARCINOMA
     Route: 042
     Dates: start: 20210113
  8. BEPRICOR [Concomitant]
     Active Substance: BEPRIDIL
     Indication: TACHYARRHYTHMIA
     Route: 048
     Dates: start: 201405
  9. VERAPAMIL HYDROCHLORIDE. [Concomitant]
     Active Substance: VERAPAMIL HYDROCHLORIDE
     Indication: TACHYARRHYTHMIA
     Route: 048
     Dates: start: 202010
  10. BARACLUDE [Concomitant]
     Active Substance: ENTECAVIR
     Indication: HEPATITIS B
     Route: 048
     Dates: start: 2010
  11. DOXAZOSIN [Concomitant]
     Active Substance: DOXAZOSIN MESYLATE
     Indication: HYPERTENSION
     Route: 048
     Dates: start: 201703

REACTIONS (1)
  - Pneumonitis [Recovering/Resolving]

NARRATIVE: CASE EVENT DATE: 20210318
